FAERS Safety Report 15454763 (Version 1)
Quarter: 2018Q4

REPORT INFORMATION
  Report Type: Spontaneous
  Country: US (occurrence: US)
  Receive Date: 20181002
  Receipt Date: 20181002
  Transmission Date: 20190204
  Serious: Yes (Hospitalization)
  Sender: FDA-Public Use
  Company Number: US-HORIZON-NVC-RAV-0152-2018

PATIENT
  Age: 20 Year
  Sex: Female

DRUGS (4)
  1. CARNITINE [Concomitant]
     Active Substance: CARNITINE
  2. SODIUM BENZOATE [Concomitant]
     Active Substance: SODIUM BENZOATE
  3. CITRULLINE [Concomitant]
     Active Substance: CITRULLINE
  4. RAVICTI [Suspect]
     Active Substance: GLYCEROL PHENYLBUTYRATE
     Indication: ORNITHINE TRANSCARBAMOYLASE DEFICIENCY
     Dosage: 3.7 ML EVERY 6 HOURS WITH MEALS
     Dates: start: 201509

REACTIONS (4)
  - Lethargy [Recovered/Resolved]
  - Hyperammonaemia [Recovered/Resolved]
  - Headache [Recovered/Resolved]
  - Nausea [Recovered/Resolved]

NARRATIVE: CASE EVENT DATE: 20180823
